FAERS Safety Report 10051709 (Version 4)
Quarter: 2014Q2

REPORT INFORMATION
  Report Type: Spontaneous
  Country: KR (occurrence: KR)
  Receive Date: 20140401
  Receipt Date: 20140513
  Transmission Date: 20141212
  Serious: Yes (Other)
  Sender: FDA-Public Use
  Company Number: KR-GILEAD-2014-0098434

PATIENT
  Age: 61 Year
  Sex: Male

DRUGS (2)
  1. ADEFOVIR DIPIVOXIL [Suspect]
     Indication: PRODUCT USED FOR UNKNOWN INDICATION
     Dosage: 10 MG, QD
     Route: 065
  2. LAMIVUDINE [Concomitant]

REACTIONS (14)
  - Blood alkaline phosphatase increased [Recovering/Resolving]
  - Osteoporosis [Recovering/Resolving]
  - Bone lesion [Recovering/Resolving]
  - Myalgia [Recovering/Resolving]
  - Arthralgia [Recovering/Resolving]
  - Arthralgia [Recovering/Resolving]
  - Urine analysis [Recovering/Resolving]
  - Proteinuria [Recovering/Resolving]
  - Urine calcium increased [Recovering/Resolving]
  - Bone density decreased [Recovering/Resolving]
  - Blood phosphorus decreased [Recovering/Resolving]
  - Asthenia [Recovering/Resolving]
  - Hypophosphataemia [Recovering/Resolving]
  - Osteomalacia [Recovering/Resolving]
